FAERS Safety Report 25292005 (Version 2)
Quarter: 2025Q3

REPORT INFORMATION
  Report Type: Spontaneous
  Country: US (occurrence: US)
  Receive Date: 20250510
  Receipt Date: 20250808
  Transmission Date: 20251020
  Serious: No
  Sender: SANOFI AVENTIS
  Company Number: US-SA-2025SA120147

PATIENT
  Age: 54 Year
  Sex: Female

DRUGS (7)
  1. DUPIXENT [Suspect]
     Active Substance: DUPILUMAB
     Indication: Dermatitis atopic
     Dosage: 300 MG, QOW
     Route: 058
     Dates: start: 20180212
  2. VALTREX [Concomitant]
     Active Substance: VALACYCLOVIR HYDROCHLORIDE
  3. ARMOUR THYROID [Concomitant]
     Active Substance: THYROID, PORCINE
  4. EPINEPHRINE [Concomitant]
     Active Substance: EPINEPHRINE
  5. ESTRADIOL [Concomitant]
     Active Substance: ESTRADIOL
  6. ACCUTANE [Concomitant]
     Active Substance: ISOTRETINOIN
  7. PREDNISONE [Concomitant]
     Active Substance: PREDNISONE

REACTIONS (1)
  - Eczema [Unknown]

NARRATIVE: CASE EVENT DATE: 20250301
